FAERS Safety Report 4657242-X (Version None)
Quarter: 2005Q2

REPORT INFORMATION
  Report Type: 
  Country: None (occurrence: None)
  Receive Date: 20050506
  Receipt Date: 20050427
  Transmission Date: 20051028
  Serious: Yes (Other)
  Sender: FDA-Public Use
  Company Number: 2005056884

PATIENT
  Age: 70 Year
  Sex: Female
  Weight: 56.246 kg

DRUGS (5)
  1. BEXTRA [Suspect]
     Indication: ARTHRITIS
     Dosage: 10 MG (10 MG, 1 IN 1 D), ORAL
     Route: 048
     Dates: start: 20010101
  2. CELEBREX [Suspect]
     Indication: ILL-DEFINED DISORDER
  3. FUROSEMIDE [Concomitant]
  4. CONJUGATED ESTROGENS [Concomitant]
  5. DRUG UNSPECIFIED [Concomitant]

REACTIONS (27)
  - ARTHRALGIA [None]
  - ARTHRITIS [None]
  - ARTHROPATHY [None]
  - BODY HEIGHT DECREASED [None]
  - CATARACT [None]
  - CEREBROSPINAL FLUID LEAKAGE [None]
  - CONDITION AGGRAVATED [None]
  - FEELING ABNORMAL [None]
  - GASTRIC DISORDER [None]
  - GASTROOESOPHAGEAL REFLUX DISEASE [None]
  - HIATUS HERNIA [None]
  - HYPERTENSION [None]
  - INSOMNIA [None]
  - INTESTINAL FUNCTIONAL DISORDER [None]
  - LIPOMA EXCISION [None]
  - MACULAR DEGENERATION [None]
  - NECK PAIN [None]
  - NODULE [None]
  - OEDEMA PERIPHERAL [None]
  - OESOPHAGEAL DISORDER [None]
  - OSTEOPOROSIS [None]
  - PAIN IN EXTREMITY [None]
  - POLLAKIURIA [None]
  - SKIN DISORDER [None]
  - SPINAL OSTEOARTHRITIS [None]
  - WEIGHT FLUCTUATION [None]
  - WRIST SURGERY [None]
